FAERS Safety Report 5353204-8 (Version None)
Quarter: 2007Q2

REPORT INFORMATION
  Report Type: 
  Country: None (occurrence: None)
  Receive Date: 20070608
  Receipt Date: 20070530
  Transmission Date: 20071010
  Serious: Yes (Other)
  Sender: FDA-Public Use
  Company Number: 234387K07USA

PATIENT
  Age: 56 Year
  Sex: Female

DRUGS (1)
  1. REBIF [Suspect]
     Indication: MULTIPLE SCLEROSIS
     Dosage: 44 MCG, 3 IN 1 WEEKS, SUBCUTANEOUS
     Route: 058
     Dates: start: 20050923

REACTIONS (8)
  - ABNORMAL SENSATION IN EYE [None]
  - BLINDNESS UNILATERAL [None]
  - CONDITION AGGRAVATED [None]
  - EYE PAIN [None]
  - MALAISE [None]
  - MULTIPLE SCLEROSIS [None]
  - PHARYNGITIS [None]
  - RETINAL HAEMORRHAGE [None]
